FAERS Safety Report 5214669-5 (Version None)
Quarter: 2007Q1

REPORT INFORMATION
  Report Type: 
  Country: None (occurrence: None)
  Receive Date: 20061108
  Receipt Date: 20060404
  Transmission Date: 20070707
  Serious: Yes (Death, Other)
  Sender: FDA-Public Use
  Company Number: US200603006272

PATIENT
  Sex: Male

DRUGS (3)
  1. FLUOXETINE HCL [Suspect]
     Indication: DEPRESSION
     Dosage: 10 MG, ORAL; SEE IMAGE
     Route: 048
     Dates: start: 19991021, end: 20031025
  2. FLUOXETINE HCL [Suspect]
     Indication: DEPRESSION
     Dosage: 10 MG, ORAL; SEE IMAGE
     Route: 048
     Dates: start: 20040123
  3. FLUOXETINE (R-FLUOXETINE) (FLUOXETINE (R-FLUOXETINE)) [Concomitant]

REACTIONS (8)
  - ABNORMAL BEHAVIOUR [None]
  - ANXIETY [None]
  - COMPLETED SUICIDE [None]
  - DISABILITY [None]
  - EMOTIONAL DISTRESS [None]
  - INSOMNIA [None]
  - PAIN [None]
  - SUICIDAL IDEATION [None]
